FAERS Safety Report 21950232 (Version 1)
Quarter: 2023Q1

REPORT INFORMATION
  Report Type: Spontaneous
  Country: US (occurrence: US)
  Receive Date: 20230203
  Receipt Date: 20230203
  Transmission Date: 20230417
  Serious: No
  Sender: FDA-Public Use
  Company Number: US-PFIZER INC-PV202300020239

PATIENT
  Age: 69 Year
  Sex: Female

DRUGS (2)
  1. DOXYCYCLINE HYCLATE [Suspect]
     Active Substance: DOXYCYCLINE HYCLATE
     Dosage: UNK
  2. TARGRETIN [Suspect]
     Active Substance: BEXAROTENE
     Dosage: UNK

REACTIONS (2)
  - Diarrhoea [Unknown]
  - Toxicity to various agents [Unknown]
